FAERS Safety Report 19732494 (Version 1)
Quarter: 2021Q3

REPORT INFORMATION
  Report Type: Spontaneous
  Country: US (occurrence: US)
  Receive Date: 20210822
  Receipt Date: 20210822
  Transmission Date: 20211014
  Serious: No
  Sender: FDA-Public Use
  Company Number: US-TEVA-2021-US-1937269

PATIENT
  Age: 86 Year
  Sex: Female

DRUGS (1)
  1. CLOTRIMAZOLE AND BETAMETHASON DIPROPIONATE [Suspect]
     Active Substance: BETAMETHASONE\CLOTRIMAZOLE
     Dosage: DOSAGE: 1
     Route: 065
     Dates: start: 20210721, end: 20210721

REACTIONS (2)
  - Mouth swelling [Recovering/Resolving]
  - Swelling face [Recovering/Resolving]

NARRATIVE: CASE EVENT DATE: 20210721
